FAERS Safety Report 12664417 (Version 1)
Quarter: 2016Q3

REPORT INFORMATION
  Report Type: Spontaneous
  Country: BR (occurrence: BR)
  Receive Date: 20160818
  Receipt Date: 20160818
  Transmission Date: 20161109
  Serious: Yes (Other)
  Sender: FDA-Public Use
  Company Number: BR-INCYTE CORPORATION-2016IN002748

PATIENT
  Sex: Female

DRUGS (1)
  1. JAKAFI [Suspect]
     Active Substance: RUXOLITINIB
     Indication: MYELOFIBROSIS
     Route: 065

REACTIONS (5)
  - Impaired healing [Unknown]
  - Facial spasm [Not Recovered/Not Resolved]
  - Tongue ulceration [Unknown]
  - Immunosuppression [Unknown]
  - Meningitis herpes [Recovered/Resolved]
